FAERS Safety Report 8563536-8 (Version None)
Quarter: 2012Q3

REPORT INFORMATION
  Report Type: 
  Country: None (occurrence: None)
  Receive Date: 20120802
  Receipt Date: 20120723
  Transmission Date: 20120928
  Serious: Yes (Life-Threatening, Other)
  Sender: FDA-Public Use
  Company Number: CN-BRISTOL-MYERS SQUIBB COMPANY-16792152

PATIENT
  Age: 59 Year
  Sex: Female

DRUGS (1)
  1. PARAPLATIN AQ [Suspect]
     Indication: MALIGNANT PERITONEAL NEOPLASM
     Dosage: ALSO RECEIVED ON 22 FEB
     Route: 041
     Dates: start: 20110101

REACTIONS (2)
  - ANAPHYLACTIC SHOCK [None]
  - CEREBRAL INFARCTION [None]
